FAERS Safety Report 8227689-3 (Version None)
Quarter: 2012Q1

REPORT INFORMATION
  Report Type: 
  Country: None (occurrence: None)
  Receive Date: 20120322
  Receipt Date: 20120316
  Transmission Date: 20120608
  Serious: Yes (Other)
  Sender: FDA-Public Use
  Company Number: US-PFIZER INC-2012037158

PATIENT
  Sex: Female

DRUGS (2)
  1. ROBITUSSIN PEAK COLD COUGH PLUS CHEST CONGESTION DM [Suspect]
     Indication: COUGH
     Dosage: UNK
     Route: 065
     Dates: end: 20120209
  2. PRILOSEC [Interacting]
     Dosage: UNK
     Route: 065
     Dates: end: 20120209

REACTIONS (7)
  - DRUG INTERACTION [None]
  - APPARENT DEATH [None]
  - MALAISE [None]
  - HYPERSENSITIVITY [None]
  - FEELING ABNORMAL [None]
  - PYREXIA [None]
  - HYPERHIDROSIS [None]
